FAERS Safety Report 23331950 (Version 1)
Quarter: 2023Q4

REPORT INFORMATION
  Report Type: Spontaneous
  Country: US (occurrence: US)
  Receive Date: 20231222
  Receipt Date: 20231222
  Transmission Date: 20240110
  Serious: No
  Sender: FDA-Public Use
  Company Number: US-SUN PHARMACEUTICAL INDUSTRIES LTD-2023R1-407205

PATIENT
  Age: 32 Year
  Sex: Female

DRUGS (2)
  1. ISOTRETINOIN [Suspect]
     Active Substance: ISOTRETINOIN
     Indication: Acne
     Dosage: UNK (ONE PILL TWICE A DAY)
     Route: 065
     Dates: start: 20230416, end: 20230626
  2. ISOTRETINOIN [Suspect]
     Active Substance: ISOTRETINOIN
     Dosage: UNK (2 PILLS TWICE A DAY)
     Route: 065
     Dates: end: 202307

REACTIONS (4)
  - Lip exfoliation [Recovered/Resolved]
  - Skin exfoliation [Recovered/Resolved]
  - Trismus [Recovered/Resolved]
  - Therapy cessation [Unknown]

NARRATIVE: CASE EVENT DATE: 20230501
